FAERS Safety Report 6773631-1 (Version None)
Quarter: 2010Q2

REPORT INFORMATION
  Report Type: 
  Country: None (occurrence: None)
  Receive Date: 20100614
  Receipt Date: 20100608
  Transmission Date: 20101027
  Serious: Yes (Life-Threatening, Other)
  Sender: FDA-Public Use
  Company Number: UTKAB-10-0271

PATIENT
  Age: 44 Year
  Sex: Female
  Weight: 66.7 kg

DRUGS (5)
  1. ABRAXANE [Suspect]
     Indication: BREAST CANCER
     Dosage: (136 MG), INTRAVENOUS
     Route: 042
     Dates: start: 20100512, end: 20100512
  2. CETIRIZINE HCL [Concomitant]
  3. CHLORHEXIDINE GLUCONATE [Concomitant]
  4. CODEINE LINCTUS) [Concomitant]
  5. METOCLOPRAMIDE (METOCLOPRAMIDE) [Concomitant]

REACTIONS (4)
  - DIZZINESS [None]
  - DYSPNOEA [None]
  - FLUSHING [None]
  - OXYGEN SATURATION DECREASED [None]
